FAERS Safety Report 24384704 (Version 1)
Quarter: 2024Q4

REPORT INFORMATION
  Report Type: Spontaneous
  Country: US (occurrence: US)
  Receive Date: 20241001
  Receipt Date: 20241001
  Transmission Date: 20250115
  Serious: Yes (Other)
  Sender: BAXTER
  Company Number: US-BAXTER-2024BAX025171

PATIENT
  Age: 70 Year
  Sex: Female

DRUGS (2)
  1. NEXTERONE [Suspect]
     Active Substance: AMIODARONE HYDROCHLORIDE
     Indication: Atrial fibrillation
     Dosage: INFUSION
     Route: 065
  2. METHYLPREDNISOLONE [Concomitant]
     Active Substance: METHYLPREDNISOLONE
     Indication: Pulmonary fibrosis
     Dosage: 60 MG TWICE DAILY
     Route: 065

REACTIONS (5)
  - Eosinophilic pneumonia acute [Recovering/Resolving]
  - Acute respiratory failure [Recovering/Resolving]
  - Lung opacity [Recovering/Resolving]
  - Lung consolidation [Recovering/Resolving]
  - Lung infiltration [Recovering/Resolving]
